FAERS Safety Report 8068770-1 (Version None)
Quarter: 2012Q1

REPORT INFORMATION
  Report Type: 
  Country: None (occurrence: None)
  Receive Date: 20120124
  Receipt Date: 20120104
  Transmission Date: 20120608
  Serious: No
  Sender: FDA-Public Use
  Company Number: US-AMGEN-USASP2011060153

PATIENT
  Age: 87 Year
  Sex: Female

DRUGS (5)
  1. CALCIUM WITH VITAMIN D             /00944201/ [Concomitant]
     Dosage: UNK
  2. THYROID HORMONES [Concomitant]
     Dosage: UNK
  3. ANTIHYPERTENSIVES [Concomitant]
     Dosage: UNK
  4. LIPITOR [Concomitant]
     Dosage: UNK
  5. PROLIA [Suspect]
     Indication: OSTEOPOROSIS POSTMENOPAUSAL
     Dosage: 60 MG, Q6MO
     Route: 058
     Dates: start: 20100101

REACTIONS (3)
  - INJECTION SITE PAIN [None]
  - INJECTION SITE HAEMORRHAGE [None]
  - WRONG TECHNIQUE IN DRUG USAGE PROCESS [None]
